FAERS Safety Report 8342899-2 (Version None)
Quarter: 2012Q2

REPORT INFORMATION
  Report Type: 
  Country: None (occurrence: None)
  Receive Date: 20120508
  Receipt Date: 20120430
  Transmission Date: 20120825
  Serious: No
  Sender: FDA-Public Use
  Company Number: US-PFIZER INC-2011290511

PATIENT
  Sex: Male
  Weight: 10.431 kg

DRUGS (1)
  1. CHILDREN'S ADVIL [Suspect]
     Indication: INFLUENZA
     Dosage: HALF A TEASPOON, EVERY 6 HOURS
     Route: 048
     Dates: start: 20111127

REACTIONS (1)
  - DRUG INEFFECTIVE [None]
